FAERS Safety Report 10613143 (Version 2)
Quarter: 2015Q1

REPORT INFORMATION
  Report Type: Report from Study
  Country: CA (occurrence: CA)
  Receive Date: 20141128
  Receipt Date: 20150323
  Transmission Date: 20150720
  Serious: Yes (Other)
  Sender: FDA-Public Use
  Company Number: CA-AMGEN-CANSL2014091518

PATIENT
  Age: 46 Year
  Sex: Female

DRUGS (8)
  1. PROLIA [Suspect]
     Active Substance: DENOSUMAB
     Indication: OSTEOPOROSIS
     Dosage: 60 MG, Q6MO
     Route: 058
  2. CARPINE                            /00043502/ [Concomitant]
     Indication: SJOGREN^S SYNDROME
     Dosage: 4 DROPS IN WATER, UNK
  3. VITAMIN B12 [Concomitant]
     Active Substance: CYANOCOBALAMIN
     Dosage: UNK
  4. CALCIUM [Concomitant]
     Active Substance: CALCIUM
     Dosage: UNK
  5. OMNARIS [Concomitant]
     Active Substance: CICLESONIDE
     Dosage: UNK
  6. ADVAIR HFA [Concomitant]
     Active Substance: FLUTICASONE PROPIONATE\SALMETEROL XINAFOATE
     Dosage: UNK
  7. VITAMIN D                          /00107901/ [Concomitant]
     Active Substance: ERGOCALCIFEROL
     Dosage: UNK
  8. RANITIDINE [Concomitant]
     Active Substance: RANITIDINE\RANITIDINE HYDROCHLORIDE
     Dosage: UNK

REACTIONS (12)
  - Pain of skin [Unknown]
  - Dry skin [Unknown]
  - Lung infection [Unknown]
  - Skin haemorrhage [Unknown]
  - Injection site discomfort [Recovered/Resolved]
  - Psychomotor skills impaired [Unknown]
  - Ear infection [Unknown]
  - Lower respiratory tract infection [Unknown]
  - Rhinitis [Unknown]
  - Anaphylactic reaction [Unknown]
  - Injection site erythema [Recovered/Resolved]
  - Dyskinesia [Unknown]
